FAERS Safety Report 10664747 (Version 2)
Quarter: 2015Q1

REPORT INFORMATION
  Report Type: Spontaneous
  Country: FR (occurrence: FR)
  Receive Date: 20141219
  Receipt Date: 20150116
  Transmission Date: 20150720
  Serious: Yes (Other)
  Sender: FDA-Public Use
  Company Number: FR-BAXTER-2014BAX073994

PATIENT
  Age: 65 Year
  Sex: Female

DRUGS (1)
  1. CLINIMIX [Suspect]
     Active Substance: ALANINE\ARGININE\DEXTROSE\GLYCINE\HISTIDINE\ISOLEUCINE\LEUCINE\LYSINE\METHIONINE\PHENYLALANINE\PROLINE\SERINE\THREONINE\TRYPTOPHAN\TYROSINE\VALINE
     Indication: PARENTERAL NUTRITION
     Route: 042
     Dates: start: 201412, end: 20141212

REACTIONS (2)
  - Extravasation [Recovered/Resolved]
  - Breast swelling [Recovered/Resolved]

NARRATIVE: CASE EVENT DATE: 20141212
